FAERS Safety Report 10548989 (Version 1)
Quarter: 2014Q4

REPORT INFORMATION
  Report Type: Spontaneous
  Country: US (occurrence: None)
  Receive Date: 20141015
  Receipt Date: 20141015
  Transmission Date: 20150529
  Serious: Yes (Hospitalization)
  Sender: FDA-Public Use
  Company Number: 2013US003571

PATIENT
  Age: 29 Year
  Sex: Male

DRUGS (1)
  1. ICLUSIG [Suspect]
     Active Substance: PONATINIB
     Indication: BLAST CELL CRISIS
     Route: 048
     Dates: start: 2013

REACTIONS (1)
  - Blast cell crisis [None]

NARRATIVE: CASE EVENT DATE: 2013
